FAERS Safety Report 14667786 (Version 1)
Quarter: 2018Q1

REPORT INFORMATION
  Report Type: Spontaneous
  Country: US (occurrence: US)
  Receive Date: 20180322
  Receipt Date: 20180322
  Transmission Date: 20180509
  Serious: No
  Sender: FDA-Public Use
  Company Number: US-PFIZER INC-2018117714

PATIENT
  Sex: Male

DRUGS (1)
  1. ADVIL PM [Suspect]
     Active Substance: DIPHENHYDRAMINE CITRATE\IBUPROFEN
     Dosage: 4 DF, UNK [TOOK 4 AT ONE TIME ]
     Dates: start: 20180320

REACTIONS (3)
  - Dizziness [Unknown]
  - Extra dose administered [Unknown]
  - Product selection error [Unknown]

NARRATIVE: CASE EVENT DATE: 20180320
